FAERS Safety Report 5401416-7 (Version None)
Quarter: 2007Q3

REPORT INFORMATION
  Report Type: 
  Country: None (occurrence: None)
  Receive Date: 20070731
  Receipt Date: 20070723
  Transmission Date: 20080115
  Serious: Yes (Hospitalization, Other)
  Sender: FDA-Public Use
  Company Number: US-MERCK-0606USA05716

PATIENT
  Age: 55 Year
  Sex: Female
  Weight: 71 kg

DRUGS (3)
  1. FOSAMAX [Suspect]
     Route: 048
     Dates: end: 20020301
  2. ZOMETA [Suspect]
     Route: 065
  3. AREDIA [Suspect]
     Route: 065

REACTIONS (5)
  - ANGINA UNSTABLE [None]
  - BACK PAIN [None]
  - MULTIPLE MYELOMA [None]
  - MYOCARDIAL ISCHAEMIA [None]
  - OSTEONECROSIS [None]
